FAERS Safety Report 5249851-4 (Version None)
Quarter: 2007Q1

REPORT INFORMATION
  Report Type: 
  Country: None (occurrence: None)
  Receive Date: 20070228
  Receipt Date: 20070220
  Transmission Date: 20070707
  Serious: Yes (Hospitalization)
  Sender: FDA-Public Use
  Company Number: SE-GLAXOSMITHKLINE-B0455260A

PATIENT
  Sex: Male

DRUGS (4)
  1. AVODART [Suspect]
     Route: 065
     Dates: start: 20060101
  2. TROMBYL [Concomitant]
     Dates: start: 19960101
  3. CIPROFLOXACIN HYDROCHLORIDE [Concomitant]
  4. NORMORIX [Concomitant]

REACTIONS (3)
  - DYSPHAGIA [None]
  - DYSPNOEA [None]
  - SWOLLEN TONGUE [None]
